FAERS Safety Report 10396281 (Version 1)
Quarter: 2014Q1

REPORT INFORMATION
  Report Type: Spontaneous
  Country: US (occurrence: None)
  Receive Date: 20130815
  Receipt Date: 20130815
  Transmission Date: 20141002
  Serious: Yes (Other)
  Sender: FDA-Public Use
  Company Number: ADR-2012-02236

PATIENT
  Sex: Male

DRUGS (4)
  1. LIORESAL INTRATHECAL [Suspect]
     Indication: PAIN
  2. DILAUDID (HYDROMORPHINE [Concomitant]
  3. FENTANYL [Concomitant]
  4. KETAMINE [Concomitant]

REACTIONS (2)
  - Pain [None]
  - No therapeutic response [None]
